FAERS Safety Report 6184354-4 (Version None)
Quarter: 2009Q2

REPORT INFORMATION
  Report Type: 
  Country: None (occurrence: None)
  Receive Date: 20090508
  Receipt Date: 20090430
  Transmission Date: 20091009
  Serious: Yes (Death, Hospitalization)
  Sender: FDA-Public Use
  Company Number: A0776640A

PATIENT
  Sex: Male
  Weight: 60 kg

DRUGS (1)
  1. SERETIDE [Suspect]
     Route: 055
     Dates: start: 20081002, end: 20081012

REACTIONS (1)
  - LUNG NEOPLASM MALIGNANT [None]
